FAERS Safety Report 4319600-2 (Version None)
Quarter: 2004Q1

REPORT INFORMATION
  Report Type: 
  Country: None (occurrence: None)
  Receive Date: 20040315
  Receipt Date: 20040301
  Transmission Date: 20041129
  Serious: Yes (Hospitalization)
  Sender: FDA-Public Use
  Company Number: 189096

PATIENT
  Age: 51 Year
  Sex: Male

DRUGS (2)
  1. AVONEX [Suspect]
     Indication: MULTIPLE SCLEROSIS
     Dosage: 30 MCG QW IM
     Route: 030
     Dates: start: 20031216, end: 20031216
  2. AVONEX [Suspect]
     Indication: MULTIPLE SCLEROSIS
     Dosage: 30 MCG QW IM
     Route: 030
     Dates: start: 20040201, end: 20040201

REACTIONS (8)
  - APHASIA [None]
  - DIFFICULTY IN WALKING [None]
  - FOOD ALLERGY [None]
  - HYPERSENSITIVITY [None]
  - HYPOTONIA [None]
  - INSOMNIA [None]
  - SYNCOPE [None]
  - TEMPERATURE INTOLERANCE [None]
